FAERS Safety Report 11400908 (Version 2)
Quarter: 2015Q3

REPORT INFORMATION
  Report Type: Report from Study
  Country: DE (occurrence: DE)
  Receive Date: 20150820
  Receipt Date: 20150826
  Transmission Date: 20151125
  Serious: Yes (Hospitalization)
  Sender: FDA-Public Use
  Company Number: DE-ABBVIE-15P-062-1447822-00

PATIENT
  Age: 72 Year
  Sex: Female

DRUGS (2)
  1. DUODOPA [Suspect]
     Active Substance: CARBIDOPA\LEVODOPA
     Dosage: MD 10.0ML, CRD 2.3ML/H, ED 1.2ML
     Route: 050
     Dates: start: 201508
  2. DUODOPA [Suspect]
     Active Substance: CARBIDOPA\LEVODOPA
     Indication: PARKINSON^S DISEASE
     Dosage: MD 10.0ML, CRD 2.4ML/H, ED 1.2ML
     Route: 050
     Dates: start: 20110520, end: 201508

REACTIONS (6)
  - Hyperkinesia [Not Recovered/Not Resolved]
  - Dehydration [Not Recovered/Not Resolved]
  - Dyskinesia [Not Recovered/Not Resolved]
  - General physical health deterioration [Not Recovered/Not Resolved]
  - Somnolence [Not Recovered/Not Resolved]
  - Bronchitis [Not Recovered/Not Resolved]

NARRATIVE: CASE EVENT DATE: 201508
